FAERS Safety Report 8593550 (Version 2)
Quarter: 2012Q4

REPORT INFORMATION
  Report Type: Report from Study
  Country: CA (occurrence: CA)
  Receive Date: 20120604
  Receipt Date: 20121114
  Transmission Date: 20130627
  Serious: Yes (Death, Hospitalization)
  Sender: FDA-Public Use
  Company Number: CA-BRISTOL-MYERS SQUIBB COMPANY-15902497

PATIENT
  Age: 58 Year
  Sex: Female

DRUGS (10)
  1. ORENCIA [Suspect]
     Indication: RHEUMATOID ARTHRITIS
     Dosage: Last infus on 05Jul11,13Mar2012(500mg)Q4h;11Apr12
Lot:1G64569 Exp:MA14;1L66305,exp:SEP14
Inf:12
     Route: 042
     Dates: start: 20110621
  2. METHOTREXATE [Concomitant]
     Route: 058
  3. LYRICA [Concomitant]
  4. VENLAFAXINE HYDROCHLORIDE [Concomitant]
  5. PLAQUENIL [Concomitant]
  6. CALCIUM + VITAMIN D [Concomitant]
  7. TRAZODONE HCL [Concomitant]
  8. DOMPERIDONE [Concomitant]
  9. PANTOLOC [Concomitant]
  10. DITROPAN [Concomitant]

REACTIONS (7)
  - Lung cancer metastatic [Fatal]
  - Hypercalcaemia [Fatal]
  - Vomiting [Recovered/Resolved]
  - Dizziness [Unknown]
  - Fatigue [Not Recovered/Not Resolved]
  - Rheumatoid arthritis [Unknown]
  - Balance disorder [Unknown]
